FAERS Safety Report 10855077 (Version 1)
Quarter: 2015Q1

REPORT INFORMATION
  Report Type: Spontaneous
  Country: FR (occurrence: None)
  Receive Date: 20150218
  Receipt Date: 20150218
  Transmission Date: 20150721
  Serious: Yes (Hospitalization)
  Sender: FDA-Public Use
  Company Number: IPC201502-000074

PATIENT
  Age: 86 Year
  Sex: Female

DRUGS (12)
  1. BRINZOLAMIDE (BRINZOLAMIDE) [Concomitant]
  2. SIMVASTATIN (SIMVASTATIN) [Concomitant]
     Active Substance: SIMVASTATIN
  3. LATANOPROST (LATANOPROST) [Concomitant]
  4. LYSINE ACETYLSALICYLATE (LYSINE ACETYLSALICYLATE) [Concomitant]
  5. VILDAGLIPTIN [Suspect]
     Active Substance: VILDAGLIPTIN
     Indication: TYPE 2 DIABETES MELLITUS
  6. METFORMIN HYDROCHLORIDE (METFORMIN HYDROCHLORIDE) [Suspect]
     Active Substance: METFORMIN HYDROCHLORIDE
     Indication: TYPE 2 DIABETES MELLITUS
  7. INSULIN (INSULIN) [Concomitant]
     Active Substance: INSULIN NOS
  8. EXEMESTANE (EXEMESTANE) [Concomitant]
  9. IRBESARTAN  HYDROCHLORIDE (IRBESARTAN HYDROCHLORIDE) [Concomitant]
  10. CARBIDOPA LEVODOPA (CARBIDOPA, LEVODOPA) [Concomitant]
  11. MEMANTINE (MEMANTINE) [Concomitant]
     Active Substance: MEMANTINE
  12. RIVASTIGMINE [Concomitant]
     Active Substance: RIVASTIGMINE

REACTIONS (1)
  - Pemphigoid [None]
